FAERS Safety Report 7033910-X (Version None)
Quarter: 2010Q4

REPORT INFORMATION
  Report Type: 
  Country: None (occurrence: None)
  Receive Date: 20101007
  Receipt Date: 20100805
  Transmission Date: 20110411
  Serious: Yes (Hospitalization, Other)
  Sender: FDA-Public Use
  Company Number: US-AMGEN-US351550

PATIENT
  Sex: Male
  Weight: 72.6 kg

DRUGS (8)
  1. NPLATE [Suspect]
     Indication: IDIOPATHIC THROMBOCYTOPENIC PURPURA
     Route: 058
     Dates: start: 20081007, end: 20090507
  2. IMMU-G [Suspect]
     Route: 042
     Dates: start: 20090415, end: 20090415
  3. CORTICOSTEROIDS [Concomitant]
     Dates: start: 20080311
  4. PREDNISONE [Concomitant]
  5. LORTAB [Concomitant]
  6. XANAX [Concomitant]
     Route: 048
  7. NORVASC [Concomitant]
     Route: 048
  8. PROTONIX [Concomitant]
     Route: 048

REACTIONS (3)
  - PNEUMONIA [None]
  - PULMONARY GRANULOMA [None]
  - THROMBOCYTOSIS [None]
